FAERS Safety Report 23998304 (Version 1)
Quarter: 2024Q2

REPORT INFORMATION
  Report Type: Spontaneous
  Country: US (occurrence: US)
  Receive Date: 20240621
  Receipt Date: 20240621
  Transmission Date: 20240716
  Serious: Yes (Hospitalization, Other)
  Sender: FDA-Public Use
  Company Number: US-ORG100016242-2024000325

PATIENT

DRUGS (1)
  1. EXPAREL [Suspect]
     Active Substance: BUPIVACAINE
     Indication: Nerve block
     Dosage: NOT PROVIDED
     Route: 065

REACTIONS (19)
  - Hospitalisation [Unknown]
  - Intensive care [Unknown]
  - Clostridium difficile infection [Unknown]
  - Acute respiratory distress syndrome [Unknown]
  - Bronchopleural fistula [Unknown]
  - Pneumothorax [Unknown]
  - Pneumonia [Unknown]
  - Therapeutic procedure [Unknown]
  - Arrhythmia supraventricular [Unknown]
  - Ventricular arrhythmia [Unknown]
  - Deep vein thrombosis postoperative [Unknown]
  - Urinary retention postoperative [Unknown]
  - Respiratory failure [Unknown]
  - Postoperative wound infection [Unknown]
  - Post procedural complication [Unknown]
  - Urinary tract infection [Unknown]
  - Pulmonary air leakage [Unknown]
  - Respiratory disorder [Unknown]
  - Off label use [Unknown]
